FAERS Safety Report 8377714-4 (Version None)
Quarter: 2012Q2

REPORT INFORMATION
  Report Type: 
  Country: None (occurrence: None)
  Receive Date: 20120522
  Receipt Date: 20120517
  Transmission Date: 20120825
  Serious: Yes (Life-Threatening, Hospitalization)
  Sender: FDA-Public Use
  Company Number: JP-GLAXOSMITHKLINE-B0644256A

PATIENT
  Sex: Female
  Weight: 34 kg

DRUGS (18)
  1. XELODA [Suspect]
     Dosage: 2400MG PER DAY
     Route: 048
     Dates: start: 20100603, end: 20101124
  2. PHENYTOIN SODIUM CAP [Suspect]
     Indication: PRODUCT USED FOR UNKNOWN INDICATION
     Route: 065
  3. DEPAKENE [Concomitant]
     Indication: CONVULSION
     Route: 048
     Dates: start: 20100309
  4. TYKERB [Suspect]
     Dosage: 1000MG PER DAY
     Route: 048
     Dates: start: 20101201, end: 20101207
  5. BETAMETHASONE [Concomitant]
     Indication: BRAIN OEDEMA
     Route: 048
     Dates: start: 20100114
  6. TYKERB [Suspect]
     Dosage: 1250MG PER DAY
     Route: 048
     Dates: start: 20100314, end: 20100519
  7. TYKERB [Suspect]
     Dosage: 750MG PER DAY
     Route: 048
     Dates: start: 20101125, end: 20101130
  8. PHENYTOIN SODIUM CAP [Concomitant]
     Indication: CONVULSION
     Route: 048
     Dates: start: 20100112, end: 20100308
  9. TYKERB [Suspect]
     Indication: BREAST CANCER
     Dosage: 1250MG PER DAY
     Route: 048
     Dates: start: 20100112, end: 20100309
  10. XELODA [Suspect]
     Dosage: 2400MG PER DAY
     Route: 048
     Dates: start: 20110106, end: 20110728
  11. GABAPENTIN [Concomitant]
     Route: 048
  12. TYKERB [Suspect]
     Dosage: 1250MG PER DAY
     Route: 048
     Dates: start: 20100603, end: 20101124
  13. TYKERB [Suspect]
     Dosage: 1250MG PER DAY
     Route: 048
     Dates: start: 20101215, end: 20110728
  14. XELODA [Suspect]
     Indication: PRODUCT USED FOR UNKNOWN INDICATION
     Dosage: 2400MG PER DAY
     Route: 048
     Dates: start: 20100112, end: 20100309
  15. XELODA [Suspect]
     Dosage: 2400MG PER DAY
     Route: 048
     Dates: start: 20100314, end: 20100519
  16. XELODA [Suspect]
     Dosage: 1800MG PER DAY
     Route: 048
     Dates: start: 20101125, end: 20110105
  17. ZONISAMIDE [Concomitant]
     Indication: CONVULSION
     Route: 048
     Dates: start: 20100309
  18. FAMOTIDINE [Concomitant]
     Indication: GASTRITIS PROPHYLAXIS
     Route: 048
     Dates: start: 20100112

REACTIONS (4)
  - PNEUMONIA [None]
  - DEHYDRATION [None]
  - DECREASED APPETITE [None]
  - INFECTIOUS PLEURAL EFFUSION [None]
